FAERS Safety Report 25013462 (Version 1)
Quarter: 2025Q1

REPORT INFORMATION
  Report Type: Spontaneous
  Country: US (occurrence: US)
  Receive Date: 20250226
  Receipt Date: 20250226
  Transmission Date: 20250408
  Serious: No
  Sender: UCB
  Company Number: US-UCBSA-2024026556

PATIENT
  Age: 93 Year
  Sex: Male

DRUGS (4)
  1. LEVETIRACETAM [Suspect]
     Active Substance: LEVETIRACETAM
     Indication: Hallucination, auditory
  2. LEVETIRACETAM [Suspect]
     Active Substance: LEVETIRACETAM
     Indication: Off label use
  3. GABAPENTIN [Suspect]
     Active Substance: GABAPENTIN
     Indication: Hallucination, auditory
  4. DONEPEZIL [Suspect]
     Active Substance: DONEPEZIL
     Indication: Hallucination, auditory

REACTIONS (2)
  - Off label use [Unknown]
  - Multiple-drug resistance [Unknown]
